FAERS Safety Report 8266131-3 (Version None)
Quarter: 2012Q1

REPORT INFORMATION
  Report Type: 
  Country: None (occurrence: None)
  Receive Date: 20120327
  Receipt Date: 20100505
  Transmission Date: 20120608
  Serious: Yes (Hospitalization)
  Sender: FDA-Public Use
  Company Number: PHHY2010US28592

PATIENT
  Sex: Female

DRUGS (2)
  1. CIPRO [Concomitant]
  2. GLEEVEC [Suspect]
     Indication: CHRONIC MYELOID LEUKAEMIA
     Dosage: 300 MG DAILY, ORAL
     Route: 048
     Dates: start: 20030701

REACTIONS (4)
  - RASH GENERALISED [None]
  - PRURITUS [None]
  - PALPITATIONS [None]
  - CARDIAC FAILURE CONGESTIVE [None]
